FAERS Safety Report 8106193-7 (Version None)
Quarter: 2012Q1

REPORT INFORMATION
  Report Type: 
  Country: None (occurrence: None)
  Receive Date: 20120130
  Receipt Date: 20120117
  Transmission Date: 20120608
  Serious: Yes (Death)
  Sender: FDA-Public Use
  Company Number: FK201200116

PATIENT
  Age: 29 Year
  Sex: Male

DRUGS (2)
  1. ETHANOL (ETHANOL) [Suspect]
     Indication: PRODUCT USED FOR UNKNOWN INDICATION
     Dosage: PARENTERAL, ORAL
     Route: 051
  2. MORPHINE SULFATE [Suspect]
     Indication: PRODUCT USED FOR UNKNOWN INDICATION
     Dosage: PARENTERAL  , ORAL
     Route: 051

REACTIONS (1)
  - TOXICITY TO VARIOUS AGENTS [None]
